FAERS Safety Report 15743299 (Version 1)
Quarter: 2018Q4

REPORT INFORMATION
  Report Type: Spontaneous
  Country: IT (occurrence: IT)
  Receive Date: 20181220
  Receipt Date: 20181220
  Transmission Date: 20190205
  Serious: Yes (Other)
  Sender: FDA-Public Use
  Company Number: IT-AMGEN-ITASP2018181529

PATIENT
  Age: 46 Year
  Sex: Female

DRUGS (2)
  1. ENBREL [Suspect]
     Active Substance: ETANERCEPT
     Indication: RHEUMATOID ARTHRITIS
     Dosage: LYOPHILIZED (50 MG, WEEKLY)
     Route: 058
     Dates: start: 20060101, end: 2007
  2. ENBREL [Suspect]
     Active Substance: ETANERCEPT
     Dosage: PRE-FILLED SYRINGE (50 MG, WEEKLY)
     Route: 058
     Dates: start: 2007, end: 20080413

REACTIONS (3)
  - Dysuria [Recovered/Resolved]
  - Escherichia urinary tract infection [Recovered/Resolved]
  - Strangury [Recovered/Resolved]

NARRATIVE: CASE EVENT DATE: 20080413
